FAERS Safety Report 12658675 (Version 2)
Quarter: 2016Q4

REPORT INFORMATION
  Report Type: Spontaneous
  Country: US (occurrence: US)
  Receive Date: 20160817
  Receipt Date: 20161013
  Transmission Date: 20170207
  Serious: No
  Sender: FDA-Public Use
  Company Number: US-ASTRAZENECA-2016SE86971

PATIENT
  Age: 68 Year
  Sex: Female

DRUGS (2)
  1. MOVANTIK [Suspect]
     Active Substance: NALOXEGOL OXALATE
     Indication: CONSTIPATION
     Dosage: 25.0MG ONCE/SINGLE ADMINISTRATION
     Route: 048
     Dates: start: 20160809
  2. OPIOID OR OPIOIDS NOT SPECIFIED  UNK [Concomitant]

REACTIONS (6)
  - Chest discomfort [Recovered/Resolved]
  - Formication [Recovered/Resolved]
  - Drug withdrawal syndrome [Recovered/Resolved]
  - Restlessness [Recovered/Resolved]
  - Hypertension [Recovered/Resolved]
  - Dyspnoea [Recovered/Resolved]
